FAERS Safety Report 9434359 (Version 3)
Quarter: 2013Q2

REPORT INFORMATION
  Report Type: Spontaneous
  Country: US (occurrence: None)
  Receive Date: 20121024
  Receipt Date: 20130507
  Transmission Date: 20140414
  Serious: Yes (Other)
  Sender: FDA-Public Use
  Company Number: ADR-2012-01928

PATIENT
  Age: 71 Year
  Sex: Male

DRUGS (2)
  1. LIORESAL INTRATHECAL [Suspect]
     Indication: MUSCLE SPASTICITY
     Dosage: SEE B5
  2. LIORESAL INTRATHECAL [Suspect]
     Dosage: SEE B5

REACTIONS (5)
  - Somnolence [None]
  - Nausea [None]
  - Aphonia [None]
  - Speech disorder [None]
  - Dysarthria [None]
